FAERS Safety Report 9712301 (Version 1)
Quarter: 2013Q4

REPORT INFORMATION
  Report Type: Report from Study
  Country: US (occurrence: US)
  Receive Date: 20131126
  Receipt Date: 20131126
  Transmission Date: 20140711
  Serious: Yes (Other)
  Sender: FDA-Public Use
  Company Number: US-PURDUE-USA-2013-0109000

PATIENT
  Age: 55 Year
  Sex: Male

DRUGS (1)
  1. OXY CR TAB [Suspect]
     Indication: SPINAL DISORDER
     Dosage: 60 MG, Q8H
     Route: 048
     Dates: start: 2008

REACTIONS (2)
  - Prostate cancer [Not Recovered/Not Resolved]
  - Disease progression [Unknown]
